FAERS Safety Report 6805002-3 (Version None)
Quarter: 2010Q2

REPORT INFORMATION
  Report Type: 
  Country: None (occurrence: None)
  Receive Date: 20100628
  Receipt Date: 20071029
  Transmission Date: 20101027
  Serious: Yes (Other)
  Sender: FDA-Public Use
  Company Number: US-PFIZER INC-2007067155

PATIENT
  Age: 56 Year
  Sex: Male
  Weight: 86.2 kg

DRUGS (6)
  1. GEODON [Suspect]
     Indication: SCHIZOAFFECTIVE DISORDER
     Dosage: 80MG BID EVERY DAY TDD:160MG
     Dates: start: 20070101
  2. EFFEXOR [Concomitant]
  3. ALL OTHER THERAPEUTIC PRODUCTS [Concomitant]
  4. FISH OIL [Concomitant]
  5. AMBIEN [Concomitant]
  6. ZOLPIDEM [Concomitant]

REACTIONS (3)
  - BLOOD CHOLESTEROL INCREASED [None]
  - BLOOD TRIGLYCERIDES INCREASED [None]
  - DIABETES MELLITUS [None]
